FAERS Safety Report 7796523-8 (Version None)
Quarter: 2011Q4

REPORT INFORMATION
  Report Type: 
  Country: None (occurrence: None)
  Receive Date: 20111005
  Receipt Date: 20111003
  Transmission Date: 20120403
  Serious: No
  Sender: FDA-Public Use
  Company Number: US-PFIZER INC-2011235773

PATIENT
  Sex: Female
  Weight: 99.773 kg

DRUGS (8)
  1. GEODON [Suspect]
     Dosage: 80 MG, 2X/DAY
     Route: 048
  2. LAMICTAL [Concomitant]
     Indication: AFFECTIVE DISORDER
     Dosage: UNK
  3. MAGNESIUM [Concomitant]
     Indication: CARDIAC DISORDER
     Dosage: UNK
  4. TRILEPTAL [Concomitant]
     Dosage: UNK
  5. GEODON [Suspect]
     Dosage: 40 MG IN MORNING AND 160 MG IN EVENING
     Dates: start: 20110101
  6. LAMICTAL [Concomitant]
     Indication: BIPOLAR DISORDER
  7. GEODON [Suspect]
     Indication: BIPOLAR DISORDER
     Dosage: 60 MG, 2X/DAY
     Route: 048
     Dates: start: 20090601
  8. GEODON [Suspect]
     Dosage: 60 MG, 2X/DAY
     Route: 048

REACTIONS (1)
  - ALOPECIA [None]
